FAERS Safety Report 18293502 (Version 3)
Quarter: 2022Q4

REPORT INFORMATION
  Report Type: Report from Study
  Country: US (occurrence: US)
  Receive Date: 20200921
  Receipt Date: 20221230
  Transmission Date: 20230113
  Serious: No
  Sender: FDA-Public Use
  Company Number: US-ACORDA-ACO_165628_2020

PATIENT
  Sex: Female

DRUGS (7)
  1. INBRIJA [Suspect]
     Active Substance: LEVODOPA
     Indication: Parkinson^s disease
     Dosage: 84 MILLIGRAM, PRN. NOT TO EXCEED 5 DOSES A DAY
     Dates: start: 20200703, end: 202010
  2. INBRIJA [Suspect]
     Active Substance: LEVODOPA
     Indication: On and off phenomenon
  3. RYTARY [Concomitant]
     Active Substance: CARBIDOPA\LEVODOPA
     Indication: Product used for unknown indication
     Dosage: 23.75 MILLIGRAM; 3 PILLS IN AM, 2 PILLS AT 10 AM, 2.00 PM AND 6.00 PM
     Route: 065
  4. CARBIDOPA\LEVODOPA [Concomitant]
     Active Substance: CARBIDOPA\LEVODOPA
     Indication: Product used for unknown indication
     Dosage: 50/200 MG, 2 PILLS AT BEDTIME
     Route: 065
  5. CARBIDOPA\LEVODOPA [Concomitant]
     Active Substance: CARBIDOPA\LEVODOPA
     Dosage: FAST ACTING 1 PILL AT NOON
     Route: 065
  6. NEUPRO [Concomitant]
     Active Substance: ROTIGOTINE
     Indication: Product used for unknown indication
     Dosage: 4 MILLIGRAM, 1 PATCH Q24 HOURS
     Route: 065
  7. ENTACAPONE [Concomitant]
     Active Substance: ENTACAPONE
     Indication: Product used for unknown indication
     Dosage: 200 MILLIGRAM, 1 PILL 1X/DAY
     Route: 065

REACTIONS (8)
  - Oral pain [Unknown]
  - Tongue disorder [Recovered/Resolved]
  - Condition aggravated [Recovered/Resolved]
  - Tremor [Unknown]
  - Device difficult to use [Unknown]
  - Product packaging difficult to open [Unknown]
  - Therapeutic product effect variable [Unknown]
  - Drug dependence [Unknown]
